FAERS Safety Report 15191943 (Version 4)
Quarter: 2018Q3

REPORT INFORMATION
  Report Type: Spontaneous
  Country: FR (occurrence: FR)
  Receive Date: 20180724
  Receipt Date: 20180808
  Transmission Date: 20181010
  Serious: Yes (Death, Hospitalization, Other)
  Sender: FDA-Public Use
  Company Number: PHHY2018FR051132

PATIENT
  Age: 80 Year
  Sex: Female
  Weight: 50 kg

DRUGS (18)
  1. FUROSEMIDE. [Suspect]
     Active Substance: FUROSEMIDE
     Dosage: 20 MG, QD
     Route: 042
     Dates: start: 20170911
  2. PREDNISONE ARROW [Suspect]
     Active Substance: PREDNISONE
     Indication: DERMATOMYOSITIS
     Dosage: 1 DF, QD
     Route: 048
  3. CORDARONE [Suspect]
     Active Substance: AMIODARONE HYDROCHLORIDE
     Indication: ARRHYTHMIA
     Dosage: 1 DF, QD
     Route: 048
  4. DIGOXINE NATIVELLE [Suspect]
     Active Substance: DIGOXIN
     Indication: ARRHYTHMIA
     Dosage: 1 DF, QD (0.25)
     Route: 040
     Dates: start: 20170911
  5. LEVOTHYROX [Suspect]
     Active Substance: LEVOTHYROXINE
     Dosage: 175 UG, QD
     Route: 040
     Dates: start: 20170911
  6. ELIQUIS [Suspect]
     Active Substance: APIXABAN
     Indication: THROMBOSIS PROPHYLAXIS
     Dosage: 1 DF, QD
     Route: 040
     Dates: start: 20170911
  7. FUROSEMIDE. [Suspect]
     Active Substance: FUROSEMIDE
     Indication: PRODUCT USED FOR UNKNOWN INDICATION
     Dosage: 20 MG, QD
     Route: 048
  8. CALCIDOSE [Suspect]
     Active Substance: CALCIUM CARBONATE
     Indication: OSTEOPOROSIS PROPHYLAXIS
     Dosage: 1 DF, QD
     Route: 048
  9. ELIQUIS [Suspect]
     Active Substance: APIXABAN
     Indication: THROMBOSIS PROPHYLAXIS
     Dosage: 1 DF, QD
     Route: 048
  10. METHOTREXATE. [Concomitant]
     Active Substance: METHOTREXATE
     Indication: NEOPLASM
     Dosage: 0.3 MG/KG, QW (IN COMBINATION WITH THREE CYCLES OF IMMUNOGLOBULINS)
     Route: 065
     Dates: start: 20170801
  11. METHOTREXATE. [Concomitant]
     Active Substance: METHOTREXATE
     Dosage: 0.3 MG/KG, UNK
     Route: 065
  12. PARACETAMOL [Suspect]
     Active Substance: ACETAMINOPHEN
     Dosage: 2 DF, QD
     Route: 040
     Dates: start: 20170911
  13. LEVOTHYROX [Suspect]
     Active Substance: LEVOTHYROXINE
     Indication: HYPOTHYROIDISM
     Dosage: 1 DF, QD
     Route: 048
  14. ARIPIPRAZOLE. [Concomitant]
     Active Substance: ARIPIPRAZOLE
     Indication: PRODUCT USED FOR UNKNOWN INDICATION
     Dosage: UNK
     Route: 065
  15. CORDARONE [Suspect]
     Active Substance: AMIODARONE HYDROCHLORIDE
     Dosage: 1 DF, QD
     Route: 040
     Dates: start: 20170911
  16. PARACETAMOL [Suspect]
     Active Substance: ACETAMINOPHEN
     Indication: PAIN
     Dosage: 500 MG, QD
     Route: 048
  17. PREDNISONE ARROW [Suspect]
     Active Substance: PREDNISONE
     Dosage: 45 MG, QD
     Route: 040
     Dates: start: 20170911
  18. CALCIDOSE [Suspect]
     Active Substance: CALCIUM CARBONATE
     Dosage: 1 DF (1 SACHET), QD
     Route: 040
     Dates: start: 20170911

REACTIONS (3)
  - Medication error [Unknown]
  - Cardiac arrest [Fatal]
  - Off label use [Unknown]

NARRATIVE: CASE EVENT DATE: 20170911
